FAERS Safety Report 8327592-4 (Version None)
Quarter: 2012Q2

REPORT INFORMATION
  Report Type: 
  Country: None (occurrence: None)
  Receive Date: 20120502
  Receipt Date: 20120418
  Transmission Date: 20120825
  Serious: Yes (Life-Threatening, Other)
  Sender: FDA-Public Use
  Company Number: CN-JNJFOC-20110306197

PATIENT
  Sex: Female

DRUGS (3)
  1. RISPERDAL [Suspect]
     Dosage: 1-4MG/DAY
     Route: 048
     Dates: start: 20100101, end: 20110201
  2. RISPERDAL [Suspect]
     Route: 048
     Dates: start: 20100323, end: 20110323
  3. RISPERDAL [Suspect]
     Indication: SCHIZOPHRENIA
     Dosage: 1-4MG/DAY
     Route: 048
     Dates: start: 20110201

REACTIONS (6)
  - FEELING ABNORMAL [None]
  - ASTHENIA [None]
  - ABDOMINAL PAIN [None]
  - TREATMENT NONCOMPLIANCE [None]
  - SUICIDAL IDEATION [None]
  - PALPITATIONS [None]
